FAERS Safety Report 4641075-4 (Version None)
Quarter: 2005Q2

REPORT INFORMATION
  Report Type: 
  Country: None (occurrence: None)
  Receive Date: 20050419
  Receipt Date: 20050419
  Transmission Date: 20051028
  Serious: Yes (Hospitalization)
  Sender: FDA-Public Use
  Company Number: None

PATIENT
  Age: 58 Year
  Sex: Male
  Weight: 71.6683 kg

DRUGS (2)
  1. GEMCITABINE [Suspect]
     Indication: PANCREATIC CARCINOMA
     Dosage: 289MG   Q2WEEKS   INTRAVENOU
     Route: 042
     Dates: start: 20050405, end: 20050406
  2. IRINOTECAN HCL [Suspect]
     Indication: PANCREATIC CARCINOMA
     Dosage: 200MG    Q2WEEKS   INTRAVENOU
     Route: 042
     Dates: start: 20050406, end: 20050407

REACTIONS (1)
  - GASTROINTESTINAL HAEMORRHAGE [None]
